FAERS Safety Report 13709227 (Version 2)
Quarter: 2017Q3

REPORT INFORMATION
  Report Type: Spontaneous
  Country: FR (occurrence: FR)
  Receive Date: 20170703
  Receipt Date: 20170921
  Transmission Date: 20171127
  Serious: Yes (Other)
  Sender: FDA-Public Use
  Company Number: FR-ABBVIE-17K-056-2025823-00

PATIENT
  Age: 25 Year
  Sex: Female
  Weight: 45 kg

DRUGS (1)
  1. HUMIRA [Suspect]
     Active Substance: ADALIMUMAB
     Indication: CROHN^S DISEASE
     Route: 058
     Dates: start: 201201, end: 201702

REACTIONS (2)
  - Erythema nodosum [Recovered/Resolved]
  - Tuberculosis [Unknown]

NARRATIVE: CASE EVENT DATE: 20170304
